FAERS Safety Report 19039384 (Version 2)
Quarter: 2021Q2

REPORT INFORMATION
  Report Type: Spontaneous
  Country: JP (occurrence: JP)
  Receive Date: 20210322
  Receipt Date: 20210413
  Transmission Date: 20210717
  Serious: No
  Sender: FDA-Public Use
  Company Number: JP-ELI_LILLY_AND_COMPANY-JP202103006120

PATIENT
  Age: 72 Year
  Sex: Female

DRUGS (5)
  1. GLACTIV [Concomitant]
     Active Substance: SITAGLIPTIN
     Dosage: 100 MG
  2. TRULICITY [Suspect]
     Active Substance: DULAGLUTIDE
     Indication: DIABETES MELLITUS
     Route: 058
  3. METFORMIN HYDROCHLORIDE. [Suspect]
     Active Substance: METFORMIN HYDROCHLORIDE
     Indication: DIABETES MELLITUS
     Dosage: 500 MG, DAILY
     Route: 065
  4. TRAZENTA [Concomitant]
     Active Substance: LINAGLIPTIN
     Dosage: 5 MG
  5. RACOL [NUTRIENTS NOS] [Concomitant]

REACTIONS (6)
  - Cellulitis [Unknown]
  - Weight increased [Unknown]
  - Diabetes mellitus inadequate control [Unknown]
  - Clavicle fracture [Unknown]
  - Fall [Unknown]
  - Subarachnoid haemorrhage [Unknown]
